FAERS Safety Report 16435263 (Version 1)
Quarter: 2019Q2

REPORT INFORMATION
  Report Type: Spontaneous
  Country: NO (occurrence: NO)
  Receive Date: 20190614
  Receipt Date: 20190614
  Transmission Date: 20190711
  Serious: Yes (Hospitalization, Congenital Anomaly)
  Sender: FDA-Public Use
  Company Number: NO-ALLERGAN-1924724US

PATIENT
  Sex: Female
  Weight: 3.83 kg

DRUGS (1)
  1. ESCITALOPRAM OXALATE - BP [Suspect]
     Active Substance: ESCITALOPRAM OXALATE
     Indication: MATERNAL EXPOSURE TIMING UNSPECIFIED
     Dosage: THE MOTHER WAS TREATED WITH CIPRALEX 20 MG DAILY THROUGHOUT THE WHOLE PREGNANCY.
     Route: 064
     Dates: start: 20180822, end: 20190528

REACTIONS (2)
  - Drug withdrawal syndrome neonatal [Recovering/Resolving]
  - Foetal exposure during pregnancy [Recovering/Resolving]

NARRATIVE: CASE EVENT DATE: 20190520
